FAERS Safety Report 7619694-2 (Version None)
Quarter: 2011Q3

REPORT INFORMATION
  Report Type: 
  Country: None (occurrence: None)
  Receive Date: 20110719
  Receipt Date: 20110719
  Transmission Date: 20111222
  Serious: Yes (Hospitalization)
  Sender: FDA-Public Use
  Company Number: JP-B.I. PHARMACEUTICALS,INC./RIDGEFIELD-2011-DE-03784BY

PATIENT
  Sex: Female
  Weight: 47 kg

DRUGS (17)
  1. TELMISARTAN/AMLODIPINE [Suspect]
     Dosage: 40 MG
     Route: 048
     Dates: start: 20101105, end: 20110126
  2. ISONIAZID [Concomitant]
     Dates: start: 20090901
  3. LIPOZART [Concomitant]
     Dates: start: 20090901
  4. UNCODEABLE ^UNCLASSIFIABLE^ [Concomitant]
     Dates: start: 20090901
  5. AMLODIPINE [Suspect]
     Dosage: 5 MG
     Route: 048
     Dates: start: 20101105, end: 20110126
  6. RISEDRONATE SODIUM [Concomitant]
  7. LEBENIN [Concomitant]
  8. TELMISARTAN [Suspect]
     Indication: RHEUMATOID VASCULITIS
     Dosage: 80 MG
     Route: 048
     Dates: start: 20101212
  9. ALFACALCIDOL [Concomitant]
     Dates: start: 20090901
  10. TELMISARTAN [Suspect]
     Dosage: 80 MG
     Route: 065
     Dates: start: 20110209
  11. METHOTREXATE [Suspect]
     Indication: RHEUMATOID VASCULITIS
     Dosage: 2.5 MG
     Route: 048
     Dates: start: 20090901, end: 20110302
  12. MAGMITT [Concomitant]
     Dates: start: 20090901
  13. PAXIL [Concomitant]
     Dates: start: 20090901
  14. TACROLIMUS [Suspect]
     Indication: RHEUMATOID VASCULITIS
     Dosage: 1 MG
     Route: 048
     Dates: start: 20090901, end: 20110301
  15. ETICALM [Concomitant]
     Dates: start: 20090901
  16. METHYLPREDNISOLONE [Suspect]
     Indication: RHEUMATOID VASCULITIS
     Dosage: 8 MG
     Route: 048
     Dates: start: 20090901
  17. CLARITHROMYCIN [Concomitant]
     Dates: start: 20110209

REACTIONS (6)
  - WEIGHT DECREASED [None]
  - FALL [None]
  - PNEUMONIA [None]
  - SUBDURAL HAEMATOMA [None]
  - POLYURIA [None]
  - DIABETES MELLITUS [None]
